FAERS Safety Report 19086390 (Version 1)
Quarter: 2021Q2

REPORT INFORMATION
  Report Type: Spontaneous
  Country: US (occurrence: US)
  Receive Date: 20210402
  Receipt Date: 20210402
  Transmission Date: 20210717
  Serious: Yes (Other)
  Sender: FDA-Public Use
  Company Number: US-EMCURE PHARMACEUTICALS LTD-2021-EPL-000996

PATIENT

DRUGS (6)
  1. METHOTREXATE. [Concomitant]
     Active Substance: METHOTREXATE
     Dosage: 12.5 MILLIGRAM, 1 DOSE PER 1W
  2. LORAZIPINE [Concomitant]
     Indication: ANXIETY
  3. TEMAZEPAM. [Concomitant]
     Active Substance: TEMAZEPAM
     Indication: ANXIETY
  4. HYDROXYZINE HYDROCHLORIDE. [Suspect]
     Active Substance: HYDROXYZINE HYDROCHLORIDE
     Indication: ANXIETY
     Dosage: 25 MILLIGRAM, BID
     Route: 065
     Dates: start: 20210126, end: 20210128
  5. FOLLIC ACID [Concomitant]
  6. PREDNISONE. [Concomitant]
     Active Substance: PREDNISONE
     Dosage: ONCE A DAY

REACTIONS (1)
  - Rash [Not Recovered/Not Resolved]
